FAERS Safety Report 17869096 (Version 5)
Quarter: 2021Q2

REPORT INFORMATION
  Report Type: Report from Study
  Country: None (occurrence: US)
  Receive Date: 20200608
  Receipt Date: 20210512
  Transmission Date: 20210717
  Serious: Yes (Hospitalization)
  Sender: FDA-Public Use
  Company Number: US-ABBVIE-20K-163-3319695-00

PATIENT
  Sex: Female

DRUGS (7)
  1. PFIZER?BIONTECH COVID?19 VACCINE [Suspect]
     Active Substance: TOZINAMERAN
     Indication: COVID-19 IMMUNISATION
     Dosage: PFIZER?BIONTECH
     Route: 030
     Dates: start: 202102, end: 202102
  2. HUMIRA [Suspect]
     Active Substance: ADALIMUMAB
     Indication: RHEUMATOID ARTHRITIS
     Route: 058
     Dates: start: 2019, end: 201910
  3. HUMIRA [Suspect]
     Active Substance: ADALIMUMAB
     Route: 058
     Dates: start: 2021
  4. METHOTREXATE. [Suspect]
     Active Substance: METHOTREXATE
     Indication: RHEUMATOID ARTHRITIS
     Route: 065
  5. METHOTREXATE. [Suspect]
     Active Substance: METHOTREXATE
     Route: 065
     Dates: start: 202003
  6. PFIZER?BIONTECH COVID?19 VACCINE [Suspect]
     Active Substance: TOZINAMERAN
     Dosage: PFIZER?BIONTECH
     Route: 030
     Dates: start: 20210309, end: 20210309
  7. HUMIRA [Suspect]
     Active Substance: ADALIMUMAB
     Route: 058
     Dates: start: 202006, end: 202102

REACTIONS (15)
  - Gait disturbance [Unknown]
  - Renal disorder [Unknown]
  - Drug ineffective [Recovering/Resolving]
  - Headache [Recovered/Resolved]
  - Pain [Not Recovered/Not Resolved]
  - Pneumonia [Recovered/Resolved]
  - Urinary retention [Recovered/Resolved]
  - Trigger finger [Unknown]
  - Headache [Recovered/Resolved]
  - Malaise [Unknown]
  - Mobility decreased [Unknown]
  - Joint range of motion decreased [Unknown]
  - Arthralgia [Not Recovered/Not Resolved]
  - Musculoskeletal stiffness [Unknown]
  - Pleurisy [None]

NARRATIVE: CASE EVENT DATE: 2019
